FAERS Safety Report 15819910 (Version 1)
Quarter: 2019Q1

REPORT INFORMATION
  Report Type: Spontaneous
  Country: US (occurrence: US)
  Receive Date: 20190114
  Receipt Date: 20190114
  Transmission Date: 20190417
  Serious: No
  Sender: FDA-Public Use
  Company Number: US-IMPAX LABORATORIES, LLC-2017-IPXL-03735

PATIENT
  Age: 31 Year
  Sex: Female

DRUGS (2)
  1. BUPROPION XL [Suspect]
     Active Substance: BUPROPION
     Dosage: 150 MG,HALF TABLET, DAILY
     Route: 048
     Dates: start: 20171212, end: 20171214
  2. BUPROPION XL [Suspect]
     Active Substance: BUPROPION
     Indication: DEPRESSION
     Dosage: UNK
     Route: 048
     Dates: start: 201709, end: 201709

REACTIONS (4)
  - Headache [Recovered/Resolved]
  - Hypertonia [Recovered/Resolved]
  - Feeling jittery [Recovered/Resolved]
  - Temporomandibular joint syndrome [Recovered/Resolved]

NARRATIVE: CASE EVENT DATE: 20171212
